FAERS Safety Report 7655264-8 (Version None)
Quarter: 2011Q3

REPORT INFORMATION
  Report Type: 
  Country: None (occurrence: None)
  Receive Date: 20110804
  Receipt Date: 20110801
  Transmission Date: 20111222
  Serious: Yes (Other)
  Sender: FDA-Public Use
  Company Number: US-BAYER-2011-067679

PATIENT
  Sex: Male

DRUGS (1)
  1. AVELOX [Suspect]
     Dosage: 400 MG, QD
     Route: 048
     Dates: start: 20110501

REACTIONS (2)
  - NAUSEA [None]
  - NERVE INJURY [None]
